FAERS Safety Report 13440771 (Version 1)
Quarter: 2017Q2

REPORT INFORMATION
  Report Type: Spontaneous
  Country: CA (occurrence: CA)
  Receive Date: 20170413
  Receipt Date: 20170413
  Transmission Date: 20170830
  Serious: Yes (Other)
  Sender: FDA-Public Use
  Company Number: CA-AMGEN-CANSP2017057004

PATIENT
  Age: 38 Year
  Sex: Female

DRUGS (1)
  1. IVABRADINE [Suspect]
     Active Substance: IVABRADINE
     Indication: POSTURAL ORTHOSTATIC TACHYCARDIA SYNDROME
     Dosage: 5 MG, BID
     Route: 065
     Dates: start: 20170328, end: 20170401

REACTIONS (6)
  - Dizziness [Unknown]
  - Tachycardia [Unknown]
  - Off label use [Unknown]
  - Feeling abnormal [Unknown]
  - Bradycardia [Unknown]
  - Fatigue [Unknown]

NARRATIVE: CASE EVENT DATE: 201703
